FAERS Safety Report 7065807-3 (Version None)
Quarter: 2010Q4

REPORT INFORMATION
  Report Type: 
  Country: None (occurrence: None)
  Receive Date: 20101027
  Receipt Date: 20101019
  Transmission Date: 20110411
  Serious: Yes (Hospitalization)
  Sender: FDA-Public Use
  Company Number: BR-ABBOTT-10P-020-0666442-00

PATIENT
  Sex: Male

DRUGS (1)
  1. HUMIRA [Suspect]
     Indication: PSORIASIS
     Dates: start: 20091001

REACTIONS (9)
  - GASTRIC DISORDER [None]
  - HAEMATOCHEZIA [None]
  - HYPERTHERMIA [None]
  - LUNG INFECTION [None]
  - PNEUMONIA [None]
  - PSORIASIS [None]
  - PYREXIA [None]
  - SINUSITIS [None]
  - SKIN EXFOLIATION [None]
